FAERS Safety Report 7535484-3 (Version None)
Quarter: 2011Q2

REPORT INFORMATION
  Report Type: 
  Country: None (occurrence: None)
  Receive Date: 20110609
  Receipt Date: 20110601
  Transmission Date: 20111010
  Serious: Yes (Death, Hospitalization)
  Sender: FDA-Public Use
  Company Number: IT-CELGENEUS-083-C5013-11051038

PATIENT
  Sex: Male
  Weight: 90 kg

DRUGS (24)
  1. COUMADIN [Concomitant]
     Indication: THROMBOSIS PROPHYLAXIS
     Dosage: ACCORDING TO INR
     Route: 048
     Dates: start: 20100921
  2. KAYEXALATE [Concomitant]
     Dosage: 1 MEASURING CUP
     Route: 048
     Dates: start: 20100415
  3. D3 VITAMIN [Concomitant]
     Indication: HYPERTHYROIDISM
     Dosage: 2.8571 DROPS
     Route: 048
     Dates: start: 20110225
  4. LENALIDOMIDE [Suspect]
     Dosage: 7.5 MILLIGRAM
     Route: 048
     Dates: start: 20110408
  5. CARDICOR [Concomitant]
     Indication: HYPERTENSION
     Dosage: 2.5 MILLIGRAM
     Route: 048
     Dates: start: 20091001, end: 20110224
  6. ELG [Concomitant]
     Indication: CONSTIPATION
     Dates: start: 20100820
  7. EPREX [Concomitant]
     Dosage: 4000 IU (INTERNATIONAL UNIT)
     Route: 058
     Dates: start: 20101111
  8. ASCRIPTIN [Concomitant]
     Dosage: 300 MILLIGRAM
     Route: 048
     Dates: start: 20100710, end: 20100920
  9. COUMADIN [Concomitant]
  10. CARDICOR [Concomitant]
     Dosage: 1.25 MILLIGRAM
     Route: 048
     Dates: start: 20110225
  11. LENALIDOMIDE [Suspect]
     Indication: MULTIPLE MYELOMA
     Dosage: 7.5 MILLIGRAM
     Route: 048
     Dates: start: 20091124
  12. DEXAMETHASONE [Suspect]
     Dosage: 5.7143 MILLIGRAM
     Route: 065
     Dates: start: 20100119, end: 20100216
  13. DEXAMETHASONE [Suspect]
     Dosage: 5.7143 MILLIGRAM
     Route: 065
     Dates: start: 20100217, end: 20100319
  14. ASCRIPTIN [Concomitant]
     Indication: THROMBOSIS PROPHYLAXIS
     Dosage: 300 MILLIGRAM
     Route: 048
     Dates: start: 20091001, end: 20100702
  15. ALFUZOSIN HCL [Concomitant]
     Dosage: 10 MILLIGRAM
     Route: 048
     Dates: start: 20060101
  16. LATTULOSIO [Concomitant]
     Indication: CONSTIPATION
     Dosage: 2 SPOONS
     Route: 048
     Dates: start: 20100820
  17. DEXAMETHASONE [Suspect]
     Dosage: 5.7143 MILLIGRAM
     Route: 065
     Dates: start: 20110408
  18. AVODART [Concomitant]
     Dosage: .5 MILLIGRAM
     Route: 048
     Dates: start: 20060101
  19. ANAFRANIL [Concomitant]
     Indication: DEPRESSION
     Dosage: 50 MILLIGRAM
     Route: 048
     Dates: start: 20091001
  20. TRIMETOPRIMA [Concomitant]
     Indication: INFECTION PROPHYLAXIS
     Dosage: 320 MILLIGRAM
     Route: 048
     Dates: start: 20091124
  21. SULFAMETHOXAZOLE [Concomitant]
     Indication: INFECTION PROPHYLAXIS
     Dosage: 228.5714 MILLIGRAM
     Route: 048
     Dates: start: 20091124
  22. LENALIDOMIDE [Suspect]
     Dosage: 7.5 MILLIGRAM
     Route: 048
     Dates: start: 20100217, end: 20100319
  23. DEXAMETHASONE [Suspect]
     Indication: MULTIPLE MYELOMA
     Dosage: 5.7143 MILLIGRAM
     Route: 065
     Dates: start: 20091124
  24. LENALIDOMIDE [Suspect]
     Dosage: 7.5 MILLIGRAM
     Route: 048
     Dates: start: 20100119, end: 20100216

REACTIONS (4)
  - INFARCTION [None]
  - VOMITING [None]
  - VERTIGO [None]
  - DYSPNOEA [None]
